FAERS Safety Report 16684861 (Version 1)
Quarter: 2019Q3

REPORT INFORMATION
  Report Type: Spontaneous
  Country: GB (occurrence: GB)
  Receive Date: 20190808
  Receipt Date: 20190808
  Transmission Date: 20191004
  Serious: Yes (Other)
  Sender: FDA-Public Use
  Company Number: GB-MYLANLABS-2019M1074094

PATIENT
  Age: 47 Year
  Sex: Female
  Weight: 94 kg

DRUGS (8)
  1. BRICANYL [Concomitant]
     Active Substance: TERBUTALINE SULFATE
     Dosage: UNK UNK, PRN (1 DOSE UP TO FOUR TIMES DAILY AS REQUIRED)
     Route: 055
     Dates: start: 20140226
  2. METRONIDAZOLE. [Concomitant]
     Active Substance: METRONIDAZOLE
     Dosage: 2 DOSAGE FORM, QD (FOR 7 DAYS)
     Dates: start: 20190125, end: 20190201
  3. CLARITHROMYCIN. [Concomitant]
     Active Substance: CLARITHROMYCIN
     Dosage: 1 DOSAGE FORM, BID
     Dates: start: 20190222
  4. DOXYCYCLINE. [Suspect]
     Active Substance: DOXYCYCLINE
     Indication: PRODUCT USED FOR UNKNOWN INDICATION
     Dosage: TWO NOW THEN ONE DAILY.
     Dates: start: 20190222
  5. TRAMADOL. [Concomitant]
     Active Substance: TRAMADOL
     Dosage: UNK (ONE TO TWO, FOUR TIMES A DAY WHEN REQUIRED)
     Dates: start: 20160427
  6. FERROUS SULFATE. [Concomitant]
     Active Substance: FERROUS SULFATE
     Dosage: 3 DOSAGE FORM, QD
     Dates: start: 20130108
  7. EPIPEN [Concomitant]
     Active Substance: EPINEPHRINE
     Dosage: UNK UNK, PRN (AS DIRECTED)
     Dates: start: 20140325
  8. DULOXETINE. [Concomitant]
     Active Substance: DULOXETINE
     Dosage: 1 DOSAGE FORM, QD
     Dates: start: 20160525

REACTIONS (3)
  - Nausea [Recovered/Resolved]
  - Tremor [Recovered/Resolved]
  - Vomiting [Recovered/Resolved]

NARRATIVE: CASE EVENT DATE: 20190222
